FAERS Safety Report 8074434-0 (Version None)
Quarter: 2012Q1

REPORT INFORMATION
  Report Type: 
  Country: None (occurrence: None)
  Receive Date: 20120126
  Receipt Date: 20120118
  Transmission Date: 20120608
  Serious: Yes (Other)
  Sender: FDA-Public Use
  Company Number: GR-GLAXOSMITHKLINE-B0777426A

PATIENT
  Age: 42 Year
  Sex: Female

DRUGS (1)
  1. LAMICTAL [Suspect]
     Indication: DEPRESSION
     Dosage: 125MG PER DAY
     Route: 065
     Dates: start: 20111201, end: 20120105

REACTIONS (3)
  - MYDRIASIS [None]
  - APHASIA [None]
  - SYNCOPE [None]
